FAERS Safety Report 21000524 (Version 2)
Quarter: 2022Q3

REPORT INFORMATION
  Report Type: Spontaneous
  Country: FR (occurrence: FR)
  Receive Date: 20220623
  Receipt Date: 20220712
  Transmission Date: 20221027
  Serious: Yes (Life-Threatening, Hospitalization)
  Sender: FDA-Public Use
  Company Number: None

PATIENT
  Age: 42 Year
  Sex: Female
  Weight: 64 kg

DRUGS (3)
  1. KEYTRUDA [Suspect]
     Active Substance: PEMBROLIZUMAB
     Indication: Triple negative breast cancer
     Dosage: 200 MILLIGRAM, 1 CYCLICAL
     Route: 042
     Dates: start: 20220601, end: 20220601
  2. EMEND [Concomitant]
     Active Substance: APREPITANT
     Indication: Triple negative breast cancer
     Dosage: 1 DOSAGE FORM, ONCE (1 TOTAL)
     Route: 048
     Dates: start: 20220601, end: 20220601
  3. ONDANSETRON [Concomitant]
     Active Substance: ONDANSETRON
     Indication: Triple negative breast cancer
     Dosage: 1 DOSAGE FORM, ONCE (1 TOTAL)
     Route: 048
     Dates: start: 20220601, end: 20220601

REACTIONS (1)
  - Anaphylactic shock [Recovered/Resolved]

NARRATIVE: CASE EVENT DATE: 20220601
